FAERS Safety Report 15408965 (Version 3)
Quarter: 2020Q4

REPORT INFORMATION
  Report Type: Spontaneous
  Country: DE (occurrence: DE)
  Receive Date: 20180920
  Receipt Date: 20201106
  Transmission Date: 20210113
  Serious: Yes (Other)
  Sender: FDA-Public Use
  Company Number: DE-MYLANLABS-2018M1068776

PATIENT
  Age: 86 Year
  Sex: Female
  Weight: 52 kg

DRUGS (36)
  1. IMATINIB. [Suspect]
     Active Substance: IMATINIB MESYLATE
     Indication: CHRONIC MYELOID LEUKAEMIA
     Dosage: 400 MG, UNK
     Route: 048
  2. IMATINIB. [Suspect]
     Active Substance: IMATINIB MESYLATE
     Dosage: 200 MG, UNK
     Route: 048
  3. FELODIPINE. [Concomitant]
     Active Substance: FELODIPINE
     Indication: PRODUCT USED FOR UNKNOWN INDICATION
     Dosage: 2.5 MG, BID
     Route: 065
     Dates: start: 2017, end: 201706
  4. FORMOTEROL [Concomitant]
     Active Substance: FORMOTEROL
     Indication: PRODUCT USED FOR UNKNOWN INDICATION
     Dosage: 1 DF, IN EVENING
     Route: 055
  5. IMATINIB. [Suspect]
     Active Substance: IMATINIB MESYLATE
     Indication: CHRONIC MYELOID LEUKAEMIA
     Dosage: 0.5 DF, QD
     Route: 048
     Dates: start: 201706
  6. GLIVEC [Suspect]
     Active Substance: IMATINIB MESYLATE
     Dosage: UNK
     Route: 065
     Dates: start: 2008
  7. GLIVEC [Suspect]
     Active Substance: IMATINIB MESYLATE
     Dosage: 100 MILLIGRAM, QD
     Route: 048
     Dates: start: 2018, end: 202009
  8. VIGANTOLETTEN [Concomitant]
     Active Substance: CHOLECALCIFEROL
     Indication: PRODUCT USED FOR UNKNOWN INDICATION
     Dosage: UNK UNK, QD
     Route: 065
  9. FOLI PLUS [Concomitant]
     Indication: PRODUCT USED FOR UNKNOWN INDICATION
     Dosage: UNK UNK, QD
     Route: 065
  10. IMATINIB. [Suspect]
     Active Substance: IMATINIB MESYLATE
     Dosage: 100 MG, QD
     Route: 048
     Dates: start: 201608, end: 201705
  11. GLIVEC [Suspect]
     Active Substance: IMATINIB MESYLATE
     Indication: CHRONIC MYELOID LEUKAEMIA
     Dosage: 200 MILLIGRAM
     Route: 048
  12. GLIVEC [Suspect]
     Active Substance: IMATINIB MESYLATE
     Dosage: 300 MILLIGRAM
     Route: 048
  13. ADENURIC [Concomitant]
     Active Substance: FEBUXOSTAT
     Indication: PRODUCT USED FOR UNKNOWN INDICATION
     Dosage: 0.5 DF, QD (AT 18 O ?CLOCK)
     Route: 065
     Dates: start: 2014
  14. IMATINIB. [Suspect]
     Active Substance: IMATINIB MESYLATE
     Indication: CHRONIC MYELOID LEUKAEMIA
     Dosage: 100 MG, QD
     Route: 065
  15. GLIVEC [Suspect]
     Active Substance: IMATINIB MESYLATE
     Dosage: 100 MILLIGRAM
     Route: 048
     Dates: start: 201705, end: 201706
  16. CYSTINOL                           /01319901/ [Concomitant]
     Indication: PRODUCT USED FOR UNKNOWN INDICATION
     Dosage: UNK UNK, QD
     Route: 065
  17. CANDECOR [Concomitant]
     Active Substance: CANDESARTAN CILEXETIL
     Dosage: 4 MG, (AT 20 O?CLOCK)
     Route: 065
  18. BISOPROLOL [Concomitant]
     Active Substance: BISOPROLOL
     Indication: PRODUCT USED FOR UNKNOWN INDICATION
     Dosage: 5 MG, QD (AT 6 O^ CLOCK)
     Route: 065
  19. MEDIVITAN INJECTION [Concomitant]
     Indication: PRODUCT USED FOR UNKNOWN INDICATION
     Dosage: UNK, MONTHLY
     Route: 065
  20. GLIVEC [Suspect]
     Active Substance: IMATINIB MESYLATE
     Dosage: 400 MILLIGRAM
     Route: 048
     Dates: start: 2011
  21. HERZ ASS [Concomitant]
     Active Substance: ASPIRIN
     Indication: PRODUCT USED FOR UNKNOWN INDICATION
     Dosage: 1 DF, QD (AT 13 O?CKLOCK)
     Route: 065
  22. CANDECOR [Concomitant]
     Active Substance: CANDESARTAN CILEXETIL
     Indication: PRODUCT USED FOR UNKNOWN INDICATION
     Dosage: 4 MG, BID
     Route: 065
  23. FELODIPINE. [Concomitant]
     Active Substance: FELODIPINE
     Dosage: 1 DF, QD 9 (AT 18 O?CLOCK)
     Route: 065
     Dates: start: 201706
  24. BISOPROLOL [Concomitant]
     Active Substance: BISOPROLOL
     Dosage: 2.5 MG, QD (AT 12 O?CLOCK))
     Route: 065
  25. IMATINIB. [Suspect]
     Active Substance: IMATINIB MESYLATE
     Dosage: 50 MG, UNK
     Route: 048
  26. MOXONIDIN [Concomitant]
     Active Substance: MOXONIDINE
     Indication: PRODUCT USED FOR UNKNOWN INDICATION
     Dosage: 0.2 MG, BID (AT 15 O?CLOCK AND AT 22 O?CLOCK)
     Route: 065
     Dates: start: 2014
  27. IMATINIB. [Suspect]
     Active Substance: IMATINIB MESYLATE
     Dosage: 50 MG, UNK
     Route: 048
  28. IMATINIB. [Suspect]
     Active Substance: IMATINIB MESYLATE
     Dosage: 300 MG, UNK
     Route: 048
  29. IMATINIB. [Suspect]
     Active Substance: IMATINIB MESYLATE
     Dosage: 100 MG, UNK
     Route: 048
  30. GLIVEC [Suspect]
     Active Substance: IMATINIB MESYLATE
     Dosage: 50 MILLIGRAM, QD
     Route: 065
     Dates: start: 202009
  31. TORASEMIDE [Concomitant]
     Active Substance: TORSEMIDE
     Indication: PRODUCT USED FOR UNKNOWN INDICATION
     Dosage: 2.5 MG, QD (AT 13^ O CLOCK)
     Route: 065
  32. CANDECOR [Concomitant]
     Active Substance: CANDESARTAN CILEXETIL
     Dosage: 8 MG, (AT 9 O?CLOCK )
     Route: 065
  33. FELODIPINE. [Concomitant]
     Active Substance: FELODIPINE
     Dosage: 5 MG, QD (AT 7 O?CLOCK))
     Route: 065
     Dates: start: 2017
  34. MAGNESIUM [Concomitant]
     Active Substance: MAGNESIUM
     Indication: PRODUCT USED FOR UNKNOWN INDICATION
     Dosage: UNK UNK, QD
     Route: 065
  35. GLIVEC [Suspect]
     Active Substance: IMATINIB MESYLATE
     Dosage: 50 MILLIGRAM
     Route: 048
     Dates: start: 201706
  36. PANTOPRAZOLE [Concomitant]
     Active Substance: PANTOPRAZOLE
     Indication: PRODUCT USED FOR UNKNOWN INDICATION
     Dosage: 40 MG, QD (AT 6 O?CLOCK)
     Route: 065

REACTIONS (22)
  - Oesophagitis [Recovering/Resolving]
  - Pruritus [Not Recovered/Not Resolved]
  - Gastric ulcer [Recovering/Resolving]
  - Gastrooesophageal reflux disease [Recovering/Resolving]
  - Fluid retention [Unknown]
  - Glomerular filtration rate decreased [Unknown]
  - Eczema asteatotic [Not Recovered/Not Resolved]
  - Blood uric acid increased [Unknown]
  - Vasculitis [Recovered/Resolved]
  - White blood cell count decreased [Recovering/Resolving]
  - Blood urea increased [Recovering/Resolving]
  - Rash [Not Recovered/Not Resolved]
  - Helicobacter gastritis [Unknown]
  - Renal disorder [Unknown]
  - Pulmonary oedema [Unknown]
  - Osteomyelitis [Unknown]
  - Blood creatinine increased [Recovering/Resolving]
  - Hypoacusis [Unknown]
  - Eczema [Not Recovered/Not Resolved]
  - Hypersensitivity [Not Recovered/Not Resolved]
  - Anaemia [Not Recovered/Not Resolved]
  - Staphylococcal infection [Unknown]

NARRATIVE: CASE EVENT DATE: 2011
